FAERS Safety Report 10029683 (Version 1)
Quarter: 2014Q1

REPORT INFORMATION
  Report Type: Spontaneous
  Country: US (occurrence: None)
  Receive Date: 20140321
  Receipt Date: 20140321
  Transmission Date: 20141002
  Serious: Yes (Life-Threatening)
  Sender: FDA-Public Use
  Company Number: None

PATIENT
  Age: 66 Year
  Sex: Female
  Weight: 65.32 kg

DRUGS (1)
  1. TRILYTE WITH FLAVOR PACKS [Suspect]
     Indication: COLONOSCOPY
     Dates: start: 20140305

REACTIONS (11)
  - Nausea [None]
  - Flushing [None]
  - Tachycardia [None]
  - Vomiting [None]
  - Arthralgia [None]
  - Local swelling [None]
  - Speech disorder [None]
  - Dry mouth [None]
  - Headache [None]
  - Hyperventilation [None]
  - Vertigo [None]
